FAERS Safety Report 21083593 (Version 1)
Quarter: 2022Q3

REPORT INFORMATION
  Report Type: Spontaneous
  Country: DE (occurrence: DE)
  Receive Date: 20220714
  Receipt Date: 20220714
  Transmission Date: 20221027
  Serious: Yes (Other)
  Sender: FDA-Public Use
  Company Number: DE-NORDICGR-2022001487

PATIENT
  Age: 27 Year
  Sex: Female

DRUGS (2)
  1. CYTOTEC [Suspect]
     Active Substance: MISOPROSTOL
     Indication: Abortion induced
     Route: 065
     Dates: start: 20220525, end: 20220525
  2. MIFEPRISTONE [Suspect]
     Active Substance: MIFEPRISTONE
     Indication: Abortion induced
     Dosage: 600 MG, SINGLE
     Route: 065
     Dates: start: 20220523, end: 20220523

REACTIONS (3)
  - Off label use [Unknown]
  - Surgery [Recovered/Resolved]
  - Induced abortion failed [Recovered/Resolved]

NARRATIVE: CASE EVENT DATE: 20220602
